FAERS Safety Report 9423064 (Version 1)
Quarter: 2013Q3

REPORT INFORMATION
  Report Type: Spontaneous
  Country: FR (occurrence: FR)
  Receive Date: 20130726
  Receipt Date: 20130726
  Transmission Date: 20140515
  Serious: Yes (Hospitalization)
  Sender: FDA-Public Use
  Company Number: FR-GLAXOSMITHKLINE-B0909127A

PATIENT
  Age: 79 Year
  Sex: Male

DRUGS (11)
  1. REQUIP LP [Suspect]
     Indication: PARKINSON^S DISEASE
     Route: 048
     Dates: start: 2006, end: 20130430
  2. TRAMADOL [Suspect]
     Indication: SELF-MEDICATION
     Route: 048
     Dates: start: 20130405, end: 20130409
  3. ACUPAN [Suspect]
     Indication: PRODUCT USED FOR UNKNOWN INDICATION
     Route: 048
     Dates: start: 20130409, end: 20130410
  4. PREVISCAN (FLUINDIONE) [Concomitant]
     Dosage: 15MG PER DAY
     Route: 048
  5. CRESTOR [Concomitant]
     Dosage: 5MG PER DAY
     Route: 048
  6. CARDENSIEL [Concomitant]
     Dosage: 7.5MG PER DAY
     Route: 048
  7. LASILIX [Concomitant]
     Dosage: 40MG PER DAY
     Route: 048
     Dates: end: 20130422
  8. KARDEGIC [Concomitant]
     Dosage: 160MG PER DAY
     Route: 048
     Dates: end: 20130422
  9. CORDARONE [Concomitant]
     Route: 048
  10. ALDACTONE [Concomitant]
     Route: 065
  11. OMACOR [Concomitant]
     Route: 065

REACTIONS (6)
  - Hallucinations, mixed [Recovered/Resolved]
  - Delusion [Recovered/Resolved]
  - Disorientation [Recovered/Resolved]
  - Circadian rhythm sleep disorder [Recovered/Resolved]
  - Substance-induced psychotic disorder [Recovered/Resolved]
  - Inappropriate schedule of drug administration [Unknown]
